FAERS Safety Report 6974967-1 (Version None)
Quarter: 2010Q3

REPORT INFORMATION
  Report Type: 
  Country: None (occurrence: None)
  Receive Date: 20100909
  Receipt Date: 20090121
  Transmission Date: 20110219
  Serious: No
  Sender: FDA-Public Use
  Company Number: US-WYE-H07813309

PATIENT
  Sex: Female

DRUGS (5)
  1. PRISTIQ [Suspect]
     Indication: DEPRESSION
     Route: 048
     Dates: start: 20090120
  2. FLEXERIL [Concomitant]
  3. PROTONIX [Concomitant]
  4. CLONAZEPAM [Concomitant]
  5. TRAZODONE HCL [Concomitant]

REACTIONS (3)
  - CRYING [None]
  - DIZZINESS [None]
  - DRUG INEFFECTIVE [None]
